FAERS Safety Report 9706727 (Version 2)
Quarter: 2014Q1

REPORT INFORMATION
  Report Type: Spontaneous
  Country: US (occurrence: US)
  Receive Date: 20131125
  Receipt Date: 20140313
  Transmission Date: 20141002
  Serious: Yes (Life-Threatening, Hospitalization, Other)
  Sender: FDA-Public Use
  Company Number: US-BAYER-2013-141341

PATIENT
  Age: 23 Year
  Sex: Female
  Weight: 90.7 kg

DRUGS (4)
  1. MIRENA [Suspect]
     Indication: CONTRACEPTION
     Dosage: 20 MCG/24HR, CONT
     Route: 015
     Dates: start: 20081006, end: 20091207
  2. CELEXA [Concomitant]
     Indication: DEPRESSION
     Dosage: 20 MG, QD
     Dates: start: 20090820, end: 20091202
  3. TRAZODONE [Concomitant]
     Indication: SLEEP DISORDER
     Dosage: 50-100 MG AT BEDTIME AS NEEDED
     Dates: start: 20090820, end: 20091202
  4. KETOCONAZOL [Concomitant]
     Indication: RASH
     Dosage: UNK
     Route: 061
     Dates: start: 20091009, end: 20091202

REACTIONS (13)
  - Uterine perforation [None]
  - Device difficult to use [None]
  - Uterine inflammation [None]
  - Uterine infection [None]
  - Emotional distress [None]
  - Injury [None]
  - Abdominal pain [None]
  - General physical health deterioration [None]
  - Anxiety [None]
  - Anhedonia [None]
  - Menorrhagia [None]
  - Scar [None]
  - Device issue [None]
